FAERS Safety Report 23317179 (Version 1)
Quarter: 2023Q4

REPORT INFORMATION
  Report Type: Spontaneous
  Country: US (occurrence: None)
  Receive Date: 20231219
  Receipt Date: 20231219
  Transmission Date: 20240110
  Serious: No
  Sender: FDA-Public Use
  Company Number: US-ROCHE-3324831

PATIENT
  Sex: Male

DRUGS (2)
  1. HEMLIBRA [Suspect]
     Active Substance: EMICIZUMAB-KXWH
     Indication: Factor VIII deficiency
     Route: 065
  2. AMICAR [Suspect]
     Active Substance: AMINOCAPROIC ACID
     Indication: Factor VIII deficiency
     Dosage: 1 DAY BEFORE AND TWO DAYS AFTER PROCEDURE
     Route: 065

REACTIONS (1)
  - Haemorrhage [Recovered/Resolved]
